FAERS Safety Report 14108508 (Version 1)
Quarter: 2017Q4

REPORT INFORMATION
  Report Type: Report from Study
  Country: US (occurrence: US)
  Receive Date: 20171019
  Receipt Date: 20171019
  Transmission Date: 20180321
  Serious: Yes (Other)
  Sender: FDA-Public Use
  Company Number: US-AMGEN-USASL2017143785

PATIENT
  Age: 51 Year
  Sex: Female
  Weight: 75.28 kg

DRUGS (1)
  1. REPATHA [Suspect]
     Active Substance: EVOLOCUMAB
     Indication: TYPE IIA HYPERLIPIDAEMIA
     Dosage: 420 MG, QMO
     Route: 065
     Dates: start: 20170323

REACTIONS (4)
  - Pelvic prolapse [Unknown]
  - Procedural site reaction [Not Recovered/Not Resolved]
  - Urinary incontinence [Unknown]
  - Constipation [Unknown]

NARRATIVE: CASE EVENT DATE: 2017
